FAERS Safety Report 19994941 (Version 1)
Quarter: 2021Q4

REPORT INFORMATION
  Report Type: Spontaneous
  Country: US (occurrence: US)
  Receive Date: 20211025
  Receipt Date: 20211025
  Transmission Date: 20220303
  Serious: Yes (Other)
  Sender: FDA-Public Use
  Company Number: US-GLAXOSMITHKLINE-US2021GSK219272

PATIENT
  Sex: Female

DRUGS (35)
  1. ZANTAC [Suspect]
     Active Substance: RANITIDINE HYDROCHLORIDE
     Indication: Dyspepsia
     Dosage: 100-150 MG.PERIODS OF NON-USE (AT LEAST 3 MONTHS WITHOUT USE).3-4X WEEK
     Route: 065
     Dates: start: 199801, end: 201701
  2. ZANTAC [Suspect]
     Active Substance: RANITIDINE HYDROCHLORIDE
     Indication: Gastrooesophageal reflux disease
  3. ZANTAC [Suspect]
     Active Substance: RANITIDINE HYDROCHLORIDE
     Indication: Gastric infection
  4. ZANTAC [Suspect]
     Active Substance: RANITIDINE HYDROCHLORIDE
     Indication: Vomiting
  5. ZANTAC [Suspect]
     Active Substance: RANITIDINE HYDROCHLORIDE
     Indication: Ulcer
  6. ZANTAC [Suspect]
     Active Substance: RANITIDINE HYDROCHLORIDE
     Indication: Dyspepsia
     Dosage: 100-150 MG.PERIODS OF NON-USE (AT LEAST 3 MONTHS WITHOUT USE).3-4X WEEK
     Route: 065
     Dates: start: 199801, end: 201701
  7. ZANTAC [Suspect]
     Active Substance: RANITIDINE HYDROCHLORIDE
     Indication: Gastrooesophageal reflux disease
  8. ZANTAC [Suspect]
     Active Substance: RANITIDINE HYDROCHLORIDE
     Indication: Gastric infection
  9. ZANTAC [Suspect]
     Active Substance: RANITIDINE HYDROCHLORIDE
     Indication: Vomiting
  10. ZANTAC [Suspect]
     Active Substance: RANITIDINE HYDROCHLORIDE
     Indication: Ulcer
  11. RANITIDINE [Suspect]
     Active Substance: RANITIDINE
     Indication: Dyspepsia
     Dosage: 150 MG, 3-4X WEEK
     Route: 065
     Dates: start: 199801, end: 201701
  12. RANITIDINE [Suspect]
     Active Substance: RANITIDINE
     Indication: Gastrooesophageal reflux disease
  13. RANITIDINE [Suspect]
     Active Substance: RANITIDINE
     Indication: Gastric infection
  14. RANITIDINE [Suspect]
     Active Substance: RANITIDINE
     Indication: Vomiting
  15. RANITIDINE [Suspect]
     Active Substance: RANITIDINE
     Indication: Ulcer
  16. RANITIDINE [Suspect]
     Active Substance: RANITIDINE
     Indication: Dyspepsia
     Dosage: 150 MG,3-4X WEEK
     Route: 065
     Dates: start: 199801, end: 201701
  17. RANITIDINE [Suspect]
     Active Substance: RANITIDINE
     Indication: Gastrooesophageal reflux disease
  18. RANITIDINE [Suspect]
     Active Substance: RANITIDINE
     Indication: Gastric infection
  19. RANITIDINE [Suspect]
     Active Substance: RANITIDINE
     Indication: Vomiting
  20. RANITIDINE [Suspect]
     Active Substance: RANITIDINE
     Indication: Ulcer
  21. RANITIDINE HYDROCHLORIDE [Suspect]
     Active Substance: RANITIDINE HYDROCHLORIDE
     Indication: Dyspepsia
     Dosage: 150 MG,3-4X A WEEK
     Route: 065
     Dates: start: 199801, end: 202012
  22. RANITIDINE HYDROCHLORIDE [Suspect]
     Active Substance: RANITIDINE HYDROCHLORIDE
     Indication: Gastrooesophageal reflux disease
  23. RANITIDINE HYDROCHLORIDE [Suspect]
     Active Substance: RANITIDINE HYDROCHLORIDE
     Indication: Gastric infection
  24. RANITIDINE HYDROCHLORIDE [Suspect]
     Active Substance: RANITIDINE HYDROCHLORIDE
     Indication: Vomiting
  25. RANITIDINE HYDROCHLORIDE [Suspect]
     Active Substance: RANITIDINE HYDROCHLORIDE
     Indication: Ulcer
  26. PRILOSEC [Suspect]
     Active Substance: OMEPRAZOLE MAGNESIUM
     Indication: Dyspepsia
     Dosage: 150 MG, 3-4X A WEEK
     Route: 065
     Dates: start: 199801, end: 202012
  27. PRILOSEC [Suspect]
     Active Substance: OMEPRAZOLE MAGNESIUM
     Indication: Gastrooesophageal reflux disease
  28. PRILOSEC [Suspect]
     Active Substance: OMEPRAZOLE MAGNESIUM
     Indication: Gastric infection
  29. PRILOSEC [Suspect]
     Active Substance: OMEPRAZOLE MAGNESIUM
     Indication: Vomiting
  30. PRILOSEC [Suspect]
     Active Substance: OMEPRAZOLE MAGNESIUM
     Indication: Ulcer
  31. TAGAMET [Suspect]
     Active Substance: CIMETIDINE
     Indication: Dyspepsia
     Dosage: 150 MG,3-4X A WEEK
     Route: 065
     Dates: start: 199801, end: 202012
  32. TAGAMET [Suspect]
     Active Substance: CIMETIDINE
     Indication: Gastrooesophageal reflux disease
  33. TAGAMET [Suspect]
     Active Substance: CIMETIDINE
     Indication: Gastric infection
  34. TAGAMET [Suspect]
     Active Substance: CIMETIDINE
     Indication: Vomiting
  35. TAGAMET [Suspect]
     Active Substance: CIMETIDINE
     Indication: Ulcer

REACTIONS (2)
  - Breast cancer [Unknown]
  - Nephrolithiasis [Unknown]
